FAERS Safety Report 18815135 (Version 1)
Quarter: 2021Q1

REPORT INFORMATION
  Report Type: Spontaneous
  Country: US (occurrence: US)
  Receive Date: 20210130
  Receipt Date: 20210130
  Transmission Date: 20210419
  Serious: No
  Sender: FDA-Public Use
  Company Number: None

PATIENT
  Age: 22 Year
  Sex: Female
  Weight: 68.04 kg

DRUGS (1)
  1. DUPIXENT [Suspect]
     Active Substance: DUPILUMAB
     Indication: DERMATITIS ATOPIC

REACTIONS (7)
  - Eyelid skin dryness [None]
  - Eyelids pruritus [None]
  - Aphthous ulcer [None]
  - Syringe issue [None]
  - Injection site pain [None]
  - Feeling abnormal [None]
  - Device malfunction [None]

NARRATIVE: CASE EVENT DATE: 20210130
